FAERS Safety Report 6333012-1 (Version None)
Quarter: 2009Q3

REPORT INFORMATION
  Report Type: 
  Country: None (occurrence: None)
  Receive Date: 20090828
  Receipt Date: 20090825
  Transmission Date: 20100115
  Serious: Yes (Death, Other)
  Sender: FDA-Public Use
  Company Number: PHHY2009BR30165

PATIENT
  Age: 86 Year
  Sex: Female

DRUGS (3)
  1. EXELON [Suspect]
     Dosage: 3 MG, TID
     Route: 048
  2. HYDERGINE [Suspect]
     Indication: DEMENTIA ALZHEIMER'S TYPE
     Dosage: 1 CAPSULE DAILY
     Route: 048
  3. GLUCOSAMINE SULFATE W/CHONDROITIN [Concomitant]
     Indication: ARTHRITIS
     Dosage: 1.5 MG, 1SACHET DAILY
     Route: 048

REACTIONS (6)
  - ABDOMINAL PAIN [None]
  - FEEDING DISORDER [None]
  - NAUSEA [None]
  - ORAL DISCHARGE [None]
  - PANCREATIC CARCINOMA [None]
  - VOMITING [None]
